FAERS Safety Report 24530123 (Version 3)
Quarter: 2024Q4

REPORT INFORMATION
  Report Type: Spontaneous
  Country: US (occurrence: US)
  Receive Date: 20241021
  Receipt Date: 20241120
  Transmission Date: 20250115
  Serious: Yes (Other)
  Sender: BIOVITRUM
  Company Number: US-BIOVITRUM-2024-US-013490

PATIENT
  Age: 87 Year
  Sex: Female

DRUGS (3)
  1. VONJO [Suspect]
     Active Substance: PACRITINIB
     Indication: Myelofibrosis
     Dosage: TAKE 2 CAPSULES TWICE DAILY
     Route: 048
     Dates: start: 20221004
  2. VONJO [Suspect]
     Active Substance: PACRITINIB
     Dosage: TAKE ONE TABLET BY MOUTH TWICE A DAY
     Route: 048
  3. VONJO [Suspect]
     Active Substance: PACRITINIB
     Dosage: 100 MG, TWICE DAILY
     Route: 048
     Dates: start: 20221004

REACTIONS (7)
  - Diarrhoea [Unknown]
  - Neuropathy peripheral [Unknown]
  - Atelectasis [Unknown]
  - Product dose omission issue [Unknown]
  - Hypervolaemia [Unknown]
  - Fluid intake reduced [Unknown]
  - Cellulitis [Unknown]
